FAERS Safety Report 22385881 (Version 3)
Quarter: 2023Q4

REPORT INFORMATION
  Report Type: Report from Study
  Country: US (occurrence: US)
  Receive Date: 20230530
  Receipt Date: 20231025
  Transmission Date: 20240110
  Serious: No
  Sender: FDA-Public Use
  Company Number: US-IDORSIA-005009-2023-US

PATIENT
  Age: 68 Year
  Sex: Female
  Weight: 61.678 kg

DRUGS (6)
  1. QUVIVIQ [Suspect]
     Active Substance: DARIDOREXANT
     Indication: Insomnia
     Dosage: 50 MG, QD PRN
     Route: 048
     Dates: start: 20230507
  2. ESTROGENS [Concomitant]
     Active Substance: ESTROGENS
     Indication: Insomnia
     Dosage: IN THE MORNING
  3. PROGESTERONE [Concomitant]
     Active Substance: PROGESTERONE
     Indication: Insomnia
     Dosage: AT NIGHT
  4. AMLODIPINE [Concomitant]
     Active Substance: AMLODIPINE BESYLATE
     Indication: Hypertension
  5. LISINOPRIL [Concomitant]
     Active Substance: LISINOPRIL
     Indication: Hypertension
  6. LEVOTHYROXINE SODIUM [Concomitant]
     Active Substance: LEVOTHYROXINE SODIUM
     Indication: Thyroid disorder

REACTIONS (2)
  - Middle insomnia [Not Recovered/Not Resolved]
  - Inappropriate schedule of product administration [Unknown]

NARRATIVE: CASE EVENT DATE: 20230508
